FAERS Safety Report 21948208 (Version 2)
Quarter: 2023Q1

REPORT INFORMATION
  Report Type: Spontaneous
  Country: DE (occurrence: DE)
  Receive Date: 20230203
  Receipt Date: 20230220
  Transmission Date: 20230417
  Serious: Yes (Hospitalization, Other)
  Sender: FDA-Public Use
  Company Number: DE-TEVA-2023-DE-2851798

PATIENT
  Age: 42 Year
  Sex: Male

DRUGS (2)
  1. METHOTREXATE [Suspect]
     Active Substance: METHOTREXATE
     Indication: Psoriatic arthropathy
     Dosage: 3.5714 MILLIGRAM DAILY; FOR THE PAST 9 YEARS
     Route: 058
  2. ADALIMUMAB [Suspect]
     Active Substance: ADALIMUMAB
     Indication: Psoriatic arthropathy
     Dosage: EVERY OTHER WEEK; FOR THE PAST 7 YEARS
     Route: 058
     Dates: start: 2010, end: 2017

REACTIONS (4)
  - Cutaneous leishmaniasis [Recovered/Resolved]
  - Visceral leishmaniasis [Recovered/Resolved]
  - Pseudolymphoma [Recovered/Resolved]
  - Skin ulcer [Recovered/Resolved]

NARRATIVE: CASE EVENT DATE: 20170101
